FAERS Safety Report 9413777 (Version 4)
Quarter: 2014Q1

REPORT INFORMATION
  Report Type: Report from Study
  Country: GR (occurrence: GR)
  Receive Date: 20130723
  Receipt Date: 20140214
  Transmission Date: 20141002
  Serious: Yes (Hospitalization)
  Sender: FDA-Public Use
  Company Number: GR-PFIZER INC-2013193826

PATIENT
  Age: 71 Year
  Sex: Female
  Weight: 57 kg

DRUGS (8)
  1. TORISEL [Suspect]
     Indication: METASTATIC RENAL CELL CARCINOMA
     Dosage: 25 MG, WEEKLY
     Route: 042
     Dates: start: 20120430, end: 20130617
  2. AVASTIN [Suspect]
     Indication: RENAL CANCER METASTATIC
     Dosage: 570 MG, CYCLIC (EVERY 2 WEEKS)
     Route: 042
     Dates: start: 20120430, end: 20130603
  3. ZOFRON [Concomitant]
     Indication: PREMEDICATION
     Dosage: 8 MG, CYCLIC (WITH EVERY THERAPY)
     Route: 042
     Dates: start: 20120430, end: 20130617
  4. ZANTAC [Concomitant]
     Indication: PREMEDICATION
     Dosage: 50 MG, CYCLIC (WITH EVERY THERAPY)
     Route: 042
     Dates: start: 20120430, end: 20130617
  5. FENISTIL [Concomitant]
     Indication: PREMEDICATION
     Dosage: 8 MG, CYCLIC (WITH EVERY THERAPY)
     Route: 042
     Dates: start: 20120430, end: 20130617
  6. DEXAMETHASONE [Concomitant]
     Indication: PREMEDICATION
     Dosage: 4 MG, CYCLIC (WITH EVERY THERAPY)
     Route: 042
     Dates: start: 20120430, end: 20130617
  7. CONTROLOC [Concomitant]
     Indication: PROPHYLAXIS AGAINST GASTROINTESTINAL ULCER
     Dosage: 40 MG, AS NEEDED (OCCASIONALLY)
     Route: 048
  8. DILATREND [Concomitant]
     Indication: HYPERTENSION
     Dosage: 12.5 MG, 2X/DAY (25 MG, HALFX2)
     Route: 048
     Dates: start: 20130527

REACTIONS (1)
  - Colitis [Recovered/Resolved]
